FAERS Safety Report 4705126-0 (Version None)
Quarter: 2005Q3

REPORT INFORMATION
  Report Type: 
  Country: None (occurrence: None)
  Receive Date: 20050701
  Receipt Date: 20050422
  Transmission Date: 20060218
  Serious: Yes (Hospitalization)
  Sender: FDA-Public Use
  Company Number: 200511419FR

PATIENT
  Sex: Male

DRUGS (3)
  1. ARAVA [Suspect]
     Route: 048
     Dates: end: 20050401
  2. BETA BLOCKING AGENTS [Suspect]
     Route: 031
     Dates: end: 20050101
  3. NSAID'S [Concomitant]
     Dates: end: 20050401

REACTIONS (5)
  - ASTHMA [None]
  - BRONCHOSPASM [None]
  - EOSINOPHILIA [None]
  - INFLAMMATION [None]
  - WHEEZING [None]
